FAERS Safety Report 14925909 (Version 1)
Quarter: 2018Q2

REPORT INFORMATION
  Report Type: Spontaneous
  Country: US (occurrence: US)
  Receive Date: 20180522
  Receipt Date: 20180522
  Transmission Date: 20180711
  Serious: No
  Sender: FDA-Public Use
  Company Number: US-BIOGEN-2017BI00422864

PATIENT
  Sex: Female

DRUGS (4)
  1. AVONEX [Suspect]
     Active Substance: INTERFERON BETA-1A
     Indication: MULTIPLE SCLEROSIS
     Route: 030
     Dates: start: 20010530
  2. MELATONIN [Concomitant]
     Active Substance: MELATONIN
     Indication: PRODUCT USED FOR UNKNOWN INDICATION
     Route: 048
  3. AVONEX [Suspect]
     Active Substance: INTERFERON BETA-1A
     Route: 030
     Dates: start: 20010530
  4. AVONEX [Suspect]
     Active Substance: INTERFERON BETA-1A
     Route: 030
     Dates: start: 2013

REACTIONS (9)
  - Venous injury [Unknown]
  - Poor quality sleep [Unknown]
  - Asthenia [Unknown]
  - Wrong technique in product usage process [Recovered/Resolved]
  - Pain [Not Recovered/Not Resolved]
  - Crying [Unknown]
  - Discomfort [Unknown]
  - Underdose [Unknown]
  - Hypoaesthesia [Not Recovered/Not Resolved]
